FAERS Safety Report 6756855-9 (Version None)
Quarter: 2010Q2

REPORT INFORMATION
  Report Type: 
  Country: None (occurrence: None)
  Receive Date: 20100604
  Receipt Date: 20100528
  Transmission Date: 20101027
  Serious: Yes (Other)
  Sender: FDA-Public Use
  Company Number: US-SANOFI-AVENTIS-2010SA029600

PATIENT
  Age: 76 Year
  Sex: Male

DRUGS (9)
  1. ELOXATIN [Suspect]
     Dosage: EVERY 21 DAYS
     Route: 041
     Dates: start: 20100401, end: 20100401
  2. XELODA [Suspect]
     Route: 048
     Dates: start: 20100401, end: 20100406
  3. AMLODIPINE BESYLATE [Concomitant]
  4. COREG [Concomitant]
  5. COMPAZINE [Concomitant]
  6. ISOSORBIDE MONONITRATE [Concomitant]
  7. IBUPROFEN [Concomitant]
  8. ASPIRIN [Concomitant]
  9. PROPOXYPHENE [Concomitant]

REACTIONS (8)
  - ANAEMIA [None]
  - ANGINA PECTORIS [None]
  - CHEST PAIN [None]
  - DYSPNOEA [None]
  - FATIGUE [None]
  - HYPERHIDROSIS [None]
  - INSOMNIA [None]
  - NAUSEA [None]
